FAERS Safety Report 4534816-8 (Version None)
Quarter: 2004Q4

REPORT INFORMATION
  Report Type: 
  Country: None (occurrence: None)
  Receive Date: 20041222
  Receipt Date: 20040325
  Transmission Date: 20050328
  Serious: No
  Sender: FDA-Public Use
  Company Number: US-BRISTOL-MYERS SQUIBB COMPANY-12542932

PATIENT
  Age: 80 Year
  Sex: Male
  Weight: 104 kg

DRUGS (10)
  1. PRAVACHOL [Suspect]
     Indication: BLOOD CHOLESTEROL INCREASED
     Route: 048
     Dates: end: 20040322
  2. ALDACTONE [Concomitant]
  3. CAPTOPRIL [Concomitant]
  4. WARFARIN SODIUM [Concomitant]
  5. FUROSEMIDE [Concomitant]
  6. GLYBURIDE [Concomitant]
  7. ISOSORBIDE [Concomitant]
  8. LANOXIN [Concomitant]
  9. METOPROLOL TARTRATE [Concomitant]
  10. DYPYRIDAMOLE [Concomitant]

REACTIONS (1)
  - AMNESIA [None]
